FAERS Safety Report 11827742 (Version 6)
Quarter: 2016Q1

REPORT INFORMATION
  Report Type: Spontaneous
  Country: US (occurrence: US)
  Receive Date: 20151211
  Receipt Date: 20160106
  Transmission Date: 20160525
  Serious: Yes (Hospitalization)
  Sender: FDA-Public Use
  Company Number: US-SA-2015SA209435

PATIENT
  Age: 67 Year
  Sex: Female
  Weight: 130 kg

DRUGS (39)
  1. WARFARIN SODIUM. [Concomitant]
     Active Substance: WARFARIN SODIUM
     Dates: start: 20150528
  2. LEVAQUIN [Concomitant]
     Active Substance: LEVOFLOXACIN
     Dates: start: 20150331, end: 20150414
  3. LASIX [Suspect]
     Active Substance: FUROSEMIDE
     Route: 042
     Dates: start: 1992
  4. ROSUVASTATIN [Concomitant]
     Active Substance: ROSUVASTATIN
     Dates: start: 20140217
  5. ASPIRIN. [Concomitant]
     Active Substance: ASPIRIN
     Dates: start: 1997, end: 2015
  6. LEVOTHYROXINE. [Concomitant]
     Active Substance: LEVOTHYROXINE
     Dates: start: 201301
  7. LORTAB [Concomitant]
     Active Substance: ACETAMINOPHEN\HYDROCODONE BITARTRATE
     Dates: start: 2005
  8. RELION NOVOLIN R [Concomitant]
     Dosage: RELION NOVOLIN R INSULIN
     Dates: start: 20141126
  9. SERTRALINE HYDROCHLORIDE. [Concomitant]
     Active Substance: SERTRALINE HYDROCHLORIDE
     Dates: start: 20141114
  10. CEFEPIME [Concomitant]
     Active Substance: CEFEPIME HYDROCHLORIDE
     Dates: start: 20150320, end: 20150331
  11. HEPARIN [Concomitant]
     Active Substance: HEPARIN SODIUM
     Dates: start: 20150521, end: 20150528
  12. DICYCLOMINE [Concomitant]
     Active Substance: DICYCLOMINE HYDROCHLORIDE
     Dates: start: 2007
  13. GABAPENTIN. [Concomitant]
     Active Substance: GABAPENTIN
     Dates: start: 2010
  14. LANTUS [Concomitant]
     Active Substance: INSULIN GLARGINE
     Dates: start: 2005, end: 20151014
  15. DOXYCYCLINE. [Concomitant]
     Active Substance: DOXYCYCLINE
     Dates: start: 20140628, end: 20140707
  16. CLOPIDOGREL [Concomitant]
     Active Substance: CLOPIDOGREL BISULFATE
     Dates: start: 201503
  17. LISINOPRIL. [Concomitant]
     Active Substance: LISINOPRIL
     Dates: start: 201312
  18. TRAMADOL. [Concomitant]
     Active Substance: TRAMADOL
     Dates: start: 2007
  19. CHLORPHENIRAMINE. [Concomitant]
     Active Substance: CHLORPHENIRAMINE
     Dates: start: 20140628, end: 20140712
  20. CARVEDILOL. [Concomitant]
     Active Substance: CARVEDILOL
     Dates: start: 201312
  21. HUMALOG [Concomitant]
     Active Substance: INSULIN LISPRO
     Dates: start: 2005, end: 20151014
  22. HYDROXYZINE HYDROCHLORIDE. [Concomitant]
     Active Substance: HYDROXYZINE HYDROCHLORIDE
     Dates: start: 201503
  23. LASIX [Suspect]
     Active Substance: FUROSEMIDE
     Route: 042
     Dates: start: 20150321, end: 20150330
  24. ROSUVASTATIN [Concomitant]
     Active Substance: ROSUVASTATIN
     Dates: start: 20140128, end: 20140216
  25. PANTOPRAZOLE SODIUM. [Concomitant]
     Active Substance: PANTOPRAZOLE SODIUM
     Dates: start: 2009
  26. SPIRONOLACTONE. [Concomitant]
     Active Substance: SPIRONOLACTONE
     Dates: start: 2012, end: 20150528
  27. HUMULIN N [Concomitant]
     Active Substance: INSULIN HUMAN
     Dates: start: 20140630, end: 20141014
  28. AMOXICILLIN. [Concomitant]
     Active Substance: AMOXICILLIN
     Dates: start: 20150308, end: 20150318
  29. NIACIN. [Concomitant]
     Active Substance: NIACIN
     Route: 048
     Dates: start: 20140217
  30. FUROSEMIDE. [Concomitant]
     Active Substance: FUROSEMIDE
     Dates: start: 1992
  31. RELION/NOVOLIN 70/30 [Concomitant]
     Dosage: RELION NOVOLIN 70/30 INSULIN
     Dates: start: 20141014
  32. ALLOPURINOL. [Concomitant]
     Active Substance: ALLOPURINOL
     Dates: start: 20141114
  33. AMLODIPINE [Concomitant]
     Active Substance: AMLODIPINE BESYLATE
     Dates: start: 201503
  34. VANCOMYCIN [Concomitant]
     Active Substance: VANCOMYCIN
     Dates: start: 20150320, end: 20150331
  35. FENOFIBRATE. [Concomitant]
     Active Substance: FENOFIBRATE
     Route: 048
     Dates: start: 20131229
  36. AMITRIPTYLINE [Concomitant]
     Active Substance: AMITRIPTYLINE
     Dates: start: 2000
  37. PLAVIX [Concomitant]
     Active Substance: CLOPIDOGREL BISULFATE
     Dates: start: 201312, end: 20150313
  38. WARFARIN [Concomitant]
     Active Substance: WARFARIN
     Dates: start: 20150528
  39. ALBUTEROL SULFATE. [Concomitant]
     Active Substance: ALBUTEROL SULFATE
     Dates: start: 201506

REACTIONS (2)
  - Acute kidney injury [Recovered/Resolved]
  - Hypernatraemia [Recovered/Resolved]

NARRATIVE: CASE EVENT DATE: 20150320
